FAERS Safety Report 15355448 (Version 3)
Quarter: 2018Q3

REPORT INFORMATION
  Report Type: Spontaneous
  Country: IT (occurrence: IT)
  Receive Date: 20180906
  Receipt Date: 20180912
  Transmission Date: 20181010
  Serious: Yes (Other)
  Sender: FDA-Public Use
  Company Number: IT-TEVA-2018-IT-951926

PATIENT
  Age: 79 Year
  Sex: Female

DRUGS (8)
  1. ENAPREN [Concomitant]
     Active Substance: ENALAPRIL MALEATE
  2. COUMADIN [Concomitant]
     Active Substance: WARFARIN SODIUM
  3. LANSOPRAZOLE. [Concomitant]
     Active Substance: LANSOPRAZOLE
  4. SINVACOR [Concomitant]
     Active Substance: SIMVASTATIN
  5. TRAJENTA [Concomitant]
     Active Substance: LINAGLIPTIN
  6. DIBASE [Concomitant]
     Active Substance: CHOLECALCIFEROL
  7. SELOKEN [Concomitant]
     Active Substance: METOPROLOL
  8. FUROSEMIDE. [Suspect]
     Active Substance: FUROSEMIDE
     Indication: CARDIAC FAILURE
     Dosage: 75 MILLIGRAM DAILY;
     Route: 048

REACTIONS (3)
  - Hyponatraemia [Recovering/Resolving]
  - Dyspepsia [Recovering/Resolving]
  - Asthenia [Recovering/Resolving]

NARRATIVE: CASE EVENT DATE: 20180724
